FAERS Safety Report 9348724 (Version 2)
Quarter: 2013Q3

REPORT INFORMATION
  Report Type: Spontaneous
  Country: GR (occurrence: GR)
  Receive Date: 20130614
  Receipt Date: 20130710
  Transmission Date: 20140515
  Serious: Yes (Other)
  Sender: FDA-Public Use
  Company Number: GR-AMGEN-GRCSP2013041598

PATIENT
  Age: 60 Year
  Sex: Female

DRUGS (2)
  1. PROLIA [Suspect]
     Indication: OSTEOPOROSIS
     Dosage: 60 MG, Q6MO
     Dates: start: 20130129
  2. AMOXICILLIN [Concomitant]

REACTIONS (3)
  - Osteonecrosis of jaw [Unknown]
  - Gingival inflammation [Recovered/Resolved]
  - Secretion discharge [Not Recovered/Not Resolved]
